FAERS Safety Report 18117576 (Version 1)
Quarter: 2020Q3

REPORT INFORMATION
  Report Type: Spontaneous
  Country: US (occurrence: US)
  Receive Date: 20200806
  Receipt Date: 20200806
  Transmission Date: 20201103
  Serious: No
  Sender: FDA-Public Use
  Company Number: US-JNJFOC-20200740353

PATIENT
  Sex: Female

DRUGS (1)
  1. PEPCID [Suspect]
     Active Substance: FAMOTIDINE
     Indication: ADVERSE DRUG REACTION
     Route: 065

REACTIONS (4)
  - Dysphonia [Unknown]
  - Oropharyngeal pain [Unknown]
  - Oral pain [Unknown]
  - Product use in unapproved indication [Unknown]
